FAERS Safety Report 8820546 (Version 2)
Quarter: 2012Q4

REPORT INFORMATION
  Report Type: Report from Study
  Country: JP (occurrence: JP)
  Receive Date: 20121002
  Receipt Date: 20121025
  Transmission Date: 20130627
  Serious: Yes (Death)
  Sender: FDA-Public Use
  Company Number: JP-SANOFI-AVENTIS-2012SA071810

PATIENT
  Age: 53 Year
  Sex: Male
  Weight: 73.6 kg

DRUGS (7)
  1. CLOPIDOGREL BISULFATE [Suspect]
     Indication: ST SEGMENT ELEVATION MYOCARDIAL INFARCTION
     Route: 065
     Dates: start: 20110111, end: 20110111
  2. CLOPIDOGREL BISULFATE [Suspect]
     Indication: ST SEGMENT ELEVATION MYOCARDIAL INFARCTION
     Route: 065
     Dates: start: 20110112, end: 20110514
  3. BAYASPIRIN [Concomitant]
     Indication: ST SEGMENT ELEVATION MYOCARDIAL INFARCTION
     Dates: start: 20110112, end: 20110514
  4. FAMOTIDINE [Concomitant]
     Dates: start: 20110111, end: 20110514
  5. LASIX [Concomitant]
     Dates: start: 20110115, end: 20110514
  6. ALDACTONE-A [Concomitant]
     Dates: start: 20110115, end: 20110514
  7. ITAVASTATIN [Concomitant]
     Dates: start: 20110123, end: 20110514

REACTIONS (1)
  - Ventricular fibrillation [Fatal]
